FAERS Safety Report 18548653 (Version 1)
Quarter: 2020Q4

REPORT INFORMATION
  Report Type: Other
  Country: US (occurrence: US)
  Receive Date: 20201126
  Receipt Date: 20201126
  Transmission Date: 20210114
  Serious: Yes (Death, Other)
  Sender: FDA-Public Use
  Company Number: US-ROCHE-2719951

PATIENT

DRUGS (18)
  1. ERLOTINIB [Suspect]
     Active Substance: ERLOTINIB
     Indication: NEOPLASM
     Route: 048
  2. BEVACIZUMAB. [Suspect]
     Active Substance: BEVACIZUMAB
     Indication: NEOPLASM
     Route: 042
  3. 5-FLUOROURACIL [Suspect]
     Active Substance: FLUOROURACIL
     Indication: LYMPHOMA
  4. SUNITINIB [Suspect]
     Active Substance: SUNITINIB
     Indication: LYMPHOMA
  5. BEVACIZUMAB. [Suspect]
     Active Substance: BEVACIZUMAB
     Indication: LYMPHOMA
  6. GEMCITABINE. [Suspect]
     Active Substance: GEMCITABINE
     Indication: NEOPLASM
     Route: 042
  7. LEUCOVORIN. [Suspect]
     Active Substance: LEUCOVORIN
     Indication: NEOPLASM
     Route: 042
  8. 5-FLUOROURACIL [Suspect]
     Active Substance: FLUOROURACIL
     Indication: NEOPLASM
     Route: 042
  9. ERLOTINIB [Suspect]
     Active Substance: ERLOTINIB
     Indication: LYMPHOMA
  10. CGC-11047. [Suspect]
     Active Substance: CGC-11047
     Indication: LYMPHOMA
  11. GEMCITABINE. [Suspect]
     Active Substance: GEMCITABINE
     Indication: LYMPHOMA
  12. DOCETAXEL. [Suspect]
     Active Substance: DOCETAXEL
     Indication: NEOPLASM
     Route: 042
  13. CGC-11047. [Suspect]
     Active Substance: CGC-11047
     Indication: NEOPLASM
     Route: 042
  14. LEUCOVORIN. [Suspect]
     Active Substance: LEUCOVORIN
     Indication: LYMPHOMA
  15. DOCETAXEL. [Suspect]
     Active Substance: DOCETAXEL
     Indication: LYMPHOMA
  16. CISPLATIN. [Suspect]
     Active Substance: CISPLATIN
     Indication: NEOPLASM
     Route: 042
  17. CISPLATIN. [Suspect]
     Active Substance: CISPLATIN
     Indication: LYMPHOMA
  18. SUNITINIB [Suspect]
     Active Substance: SUNITINIB
     Indication: NEOPLASM
     Route: 048

REACTIONS (6)
  - Cardiac arrest [Fatal]
  - Cardio-respiratory arrest [Fatal]
  - Hypokalaemia [Unknown]
  - Respiratory failure [Fatal]
  - Hypoxia [Fatal]
  - Angioedema [Unknown]
